FAERS Safety Report 15898996 (Version 6)
Quarter: 2019Q2

REPORT INFORMATION
  Report Type: Report from Study
  Country: CN (occurrence: CN)
  Receive Date: 20190201
  Receipt Date: 20190603
  Transmission Date: 20190711
  Serious: Yes (Death, Hospitalization)
  Sender: FDA-Public Use
  Company Number: CN-ROCHE-2255232

PATIENT
  Age: 53 Year
  Sex: Male
  Weight: 56.5 kg

DRUGS (1)
  1. ATEZOLIZUMAB. [Suspect]
     Active Substance: ATEZOLIZUMAB
     Indication: GASTRIC CANCER
     Dosage: ATEZOLIZUMAB WILL BE ADMINISTERED AT A DOSE OF 1200 MG IV Q3W (IN 21-DAY CYCLES) AS PER PROTOCOL?THE
     Route: 042
     Dates: start: 20180926

REACTIONS (2)
  - Death [Fatal]
  - Upper gastrointestinal haemorrhage [Unknown]

NARRATIVE: CASE EVENT DATE: 20190125
